FAERS Safety Report 10663140 (Version 2)
Quarter: 2014Q4

REPORT INFORMATION
  Report Type: Spontaneous
  Country: US (occurrence: US)
  Receive Date: 20141218
  Receipt Date: 20141218
  Transmission Date: 20150529
  Serious: Yes (Death, Hospitalization, Other)
  Sender: FDA-Public Use
  Company Number: US-CELGENE-163-21880-14052941

PATIENT
  Age: 52 Year
  Sex: Male

DRUGS (2)
  1. REVLIMID [Suspect]
     Active Substance: LENALIDOMIDE
     Indication: MYELODYSPLASTIC SYNDROME
     Dosage: 50 MILLIGRAM
     Route: 048
     Dates: start: 20140418, end: 20140515
  2. AMICAR [Concomitant]
     Active Substance: AMINOCAPROIC ACID
     Indication: HAEMORRHAGE
     Route: 048
     Dates: start: 201404, end: 201406

REACTIONS (3)
  - Death [Fatal]
  - Neutropenia [Not Recovered/Not Resolved]
  - Bacteraemia [Unknown]

NARRATIVE: CASE EVENT DATE: 2014
